FAERS Safety Report 8603418-6 (Version None)
Quarter: 2012Q3

REPORT INFORMATION
  Report Type: 
  Country: None (occurrence: None)
  Receive Date: 20120817
  Receipt Date: 20120810
  Transmission Date: 20120928
  Serious: Yes (Hospitalization)
  Sender: FDA-Public Use
  Company Number: US-BAUSCH-BL-2012-000404

PATIENT
  Age: 21 Year
  Sex: Female

DRUGS (1)
  1. DESMOPRESSIN ACETATE [Suspect]
     Indication: DIABETES INSIPIDUS
     Dosage: 3 SPRAYS IN EACH NOSTRIL, AT BEDTIME
     Dates: start: 20120501, end: 20120807

REACTIONS (2)
  - HYPONATRAEMIA [None]
  - GRAND MAL CONVULSION [None]
